FAERS Safety Report 19123224 (Version 1)
Quarter: 2021Q2

REPORT INFORMATION
  Report Type: Spontaneous
  Country: US (occurrence: US)
  Receive Date: 20210412
  Receipt Date: 20210412
  Transmission Date: 20210717
  Serious: No
  Sender: FDA-Public Use
  Company Number: US-ORGANON-O2103USA003014

PATIENT
  Age: 37 Year
  Sex: Female

DRUGS (7)
  1. DOXYCYCLINE HYCLATE. [Concomitant]
     Active Substance: DOXYCYCLINE HYCLATE
     Dosage: UNK
  2. STERILE WATER [Suspect]
     Active Substance: WATER
     Dosage: UNK
  3. LETROZOLE. [Concomitant]
     Active Substance: LETROZOLE
     Dosage: UNK
  4. PREGNYL [Suspect]
     Active Substance: CHORIOGONADOTROPIN ALFA
     Dosage: 10000 UNITS
     Route: 030
  5. FOLLISTIM AQ [Suspect]
     Active Substance: FOLLITROPIN
     Dosage: 450 INTERNATIONAL UNIT, DAILY 6?9PM
     Route: 058
  6. GANIRELIX ACETATE INJECTION [Concomitant]
     Active Substance: GANIRELIX ACETATE
  7. MENOPUR [Concomitant]
     Active Substance: FOLLITROPIN\LUTEINIZING HORMONE
     Dosage: UNK

REACTIONS (1)
  - Injection site pain [Unknown]

NARRATIVE: CASE EVENT DATE: 202102
